FAERS Safety Report 9325119 (Version 4)
Quarter: 2014Q1

REPORT INFORMATION
  Report Type: Spontaneous
  Country: US (occurrence: None)
  Receive Date: 20130529
  Receipt Date: 20131028
  Transmission Date: 20141002
  Serious: Yes (Hospitalization)
  Sender: FDA-Public Use
  Company Number: SYM-2013-04096

PATIENT
  Age: 59 Year
  Sex: Male

DRUGS (7)
  1. BUPROPION (BUPROPION) (150 MILLIGRAM, TABLET) (BUPROPION) [Suspect]
     Indication: SMOKING CESSATION THERAPY
     Route: 048
     Dates: start: 20130412, end: 20130501
  2. LITHIUM CARBONATE (LITHIUM CARBONATE) [Concomitant]
  3. MIRTAZAPINE (MIRTAZAPINE) [Concomitant]
  4. SIMVASTATIN (SIMVASTATIN) [Concomitant]
  5. ASPIRIN (ACETYLSALICYLIC ACID) [Concomitant]
  6. CITRUCEL (METHYLCELLULOSE) [Concomitant]
  7. MULTIVITAMINS (MULTIVITAMINS) (ERGOCALCIFEROL, ASCORBIC ACID, FOLIC ACID, THIAMINE HYDROCHLORIDE, RETINOL, RIBOFLAVIN, NICOTINAMIDE, PANTHENOL) [Concomitant]

REACTIONS (2)
  - Bipolar II disorder [None]
  - Condition aggravated [None]
